FAERS Safety Report 6115398-6 (Version None)
Quarter: 2009Q1

REPORT INFORMATION
  Report Type: 
  Country: None (occurrence: None)
  Receive Date: 20090313
  Receipt Date: 20090309
  Transmission Date: 20090719
  Serious: Yes (Hospitalization, Other)
  Sender: FDA-Public Use
  Company Number: PHHY2009IE08564

PATIENT
  Age: 57 Year
  Sex: Female

DRUGS (7)
  1. BROMOCRIPTINE MESYLATE [Suspect]
     Dosage: 1.25 MG, DAILY
  2. BROMOCRIPTINE MESYLATE [Suspect]
     Dosage: 2.5 MG, BID
  3. BROMOCRIPTINE MESYLATE [Suspect]
     Dosage: 5 MG, BID
  4. BROMOCRIPTINE MESYLATE [Suspect]
     Dosage: 10 MG, BID
  5. BROMOCRIPTINE MESYLATE [Suspect]
     Dosage: 15 MG, BID
  6. BROMOCRIPTINE MESYLATE [Suspect]
     Dosage: 20 MG, BID
     Dates: start: 20020101
  7. BROMOCRIPTINE MESYLATE [Suspect]
     Dosage: 40 MG DAILY

REACTIONS (4)
  - ENDOMETRIAL CANCER [None]
  - HYSTERECTOMY [None]
  - MALIGNANT TUMOUR EXCISION [None]
  - NAUSEA [None]
